FAERS Safety Report 24082362 (Version 1)
Quarter: 2024Q3

REPORT INFORMATION
  Report Type: Spontaneous
  Country: CN (occurrence: CN)
  Receive Date: 20240712
  Receipt Date: 20240712
  Transmission Date: 20241016
  Serious: Yes (Life-Threatening, Other)
  Sender: AMGEN
  Company Number: CN-AMGEN-CHNSP2024134281

PATIENT

DRUGS (3)
  1. PEGFILGRASTIM [Suspect]
     Active Substance: PEGFILGRASTIM
     Indication: Prophylaxis
     Dosage: UNK, AFTER CHEMO, 6 MG OR 3 MG PER CHEMOTHERAPY CYCLE 48 H AFTER COMPLETING CHEMOTHERAPY
     Route: 058
  2. FILGRASTIM [Suspect]
     Active Substance: FILGRASTIM
     Indication: Product used for unknown indication
     Dosage: UNK
     Route: 065
  3. CYCLOPHOSPHAMIDE [Concomitant]
     Active Substance: CYCLOPHOSPHAMIDE
     Indication: Breast cancer
     Dosage: 600 MILLIGRAM/SQ. METER FOR 14 OR 21 DAYS FOR UP TO FOUR CYCLES
     Route: 042

REACTIONS (24)
  - Leukopenia [Unknown]
  - Neutropenia [Unknown]
  - Alanine aminotransferase increased [Unknown]
  - Thrombocytopenia [Unknown]
  - Febrile neutropenia [Unknown]
  - Cardiotoxicity [Unknown]
  - Adverse event [Unknown]
  - Fatigue [Unknown]
  - Insomnia [Unknown]
  - Constipation [Unknown]
  - Mucosal inflammation [Unknown]
  - Blood bilirubin increased [Unknown]
  - Anaemia [Unknown]
  - Alopecia [Unknown]
  - Decreased appetite [Unknown]
  - Diarrhoea [Unknown]
  - Dizziness [Unknown]
  - Pyrexia [Unknown]
  - Nausea [Unknown]
  - Aspartate aminotransferase increased [Unknown]
  - Musculoskeletal pain [Unknown]
  - Rash [Unknown]
  - Blood alkaline phosphatase increased [Unknown]
  - Injection site pain [Unknown]
